FAERS Safety Report 8090346-0 (Version None)
Quarter: 2012Q1

REPORT INFORMATION
  Report Type: 
  Country: None (occurrence: None)
  Receive Date: 20120129
  Receipt Date: 20111128
  Transmission Date: 20120608
  Serious: No
  Sender: FDA-Public Use
  Company Number: US-ABBOTT-11P-163-0879527-00

PATIENT
  Sex: Male
  Weight: 72.64 kg

DRUGS (10)
  1. CARVEDILOL [Concomitant]
     Indication: CARDIAC DISORDER
  2. DIOVAN [Concomitant]
     Indication: CARDIAC DISORDER
  3. HUMIRA [Suspect]
     Indication: RHEUMATOID ARTHRITIS
     Route: 058
     Dates: start: 20110909
  4. LIPITOR [Concomitant]
     Indication: PROPHYLAXIS
  5. VITAMIN B-12 [Concomitant]
     Indication: ANAEMIA
  6. FLOMAX [Concomitant]
     Indication: PROSTATOMEGALY
  7. METHOTREXATE [Concomitant]
     Indication: RHEUMATOID ARTHRITIS
  8. CELEBREX [Concomitant]
     Indication: RHEUMATOID ARTHRITIS
  9. FOSAMAX [Concomitant]
     Indication: OSTEOPOROSIS
  10. FOLIC ACID [Concomitant]
     Indication: VITAMIN SUPPLEMENTATION

REACTIONS (1)
  - DRUG INEFFECTIVE [None]
